FAERS Safety Report 6922088-6 (Version None)
Quarter: 2010Q3

REPORT INFORMATION
  Report Type: 
  Country: None (occurrence: None)
  Receive Date: 20100812
  Receipt Date: 20100803
  Transmission Date: 20110219
  Serious: Yes (Hospitalization)
  Sender: FDA-Public Use
  Company Number: BR-ABBOTT-10P-020-0661952-00

PATIENT
  Sex: Male
  Weight: 64 kg

DRUGS (4)
  1. HUMIRA [Suspect]
     Indication: RHEUMATOID ARTHRITIS
     Route: 058
     Dates: start: 20070115
  2. HUMIRA [Suspect]
  3. OMEPRAZOLE [Concomitant]
     Indication: GASTRIC DISORDER
     Route: 048
     Dates: start: 20090101
  4. OMEPRAZOLE [Concomitant]
     Indication: PROPHYLAXIS

REACTIONS (5)
  - BACK PAIN [None]
  - COUGH [None]
  - INFLUENZA [None]
  - MUSCULOSKELETAL PAIN [None]
  - PNEUMONIA [None]
